FAERS Safety Report 24635635 (Version 1)
Quarter: 2024Q4

REPORT INFORMATION
  Report Type: Spontaneous
  Country: US (occurrence: None)
  Receive Date: 20241118
  Receipt Date: 20241118
  Transmission Date: 20250114
  Serious: Yes (Hospitalization)
  Sender: Public
  Company Number: None

PATIENT
  Age: 78 Year
  Sex: Female

DRUGS (2)
  1. BRAFTOVI [Suspect]
     Active Substance: ENCORAFENIB
     Indication: Malignant melanoma
     Dosage: FREQUENCY : DAILY;?
     Route: 048
  2. MEKTOVI [Concomitant]

REACTIONS (9)
  - Inappropriate schedule of product administration [None]
  - Asthenia [None]
  - Dizziness [None]
  - Vertigo [None]
  - Nausea [None]
  - Pain [None]
  - Headache [None]
  - Dyspnoea [None]
  - Chromaturia [None]
